FAERS Safety Report 10931923 (Version 1)
Quarter: 2015Q1

REPORT INFORMATION
  Report Type: Report from Study
  Country: CA (occurrence: CA)
  Receive Date: 20150319
  Receipt Date: 20150319
  Transmission Date: 20150721
  Serious: Yes (Hospitalization)
  Sender: FDA-Public Use
  Company Number: CA-ACTELION-A-NJ2015-114826

PATIENT
  Age: 68 Year
  Sex: Male
  Weight: 63.49 kg

DRUGS (15)
  1. VELETRI [Suspect]
     Active Substance: EPOPROSTENOL
     Indication: PULMONARY ARTERIAL HYPERTENSION
     Dosage: 30 NG/KG, PER MIN
     Route: 042
     Dates: start: 20140826
  2. FUROSEMIDE. [Concomitant]
     Active Substance: FUROSEMIDE
  3. SYMBICORT [Concomitant]
     Active Substance: BUDESONIDE\FORMOTEROL FUMARATE DIHYDRATE
  4. FLOMAX [Concomitant]
     Active Substance: TAMSULOSIN HYDROCHLORIDE
  5. ENALAPRIL [Concomitant]
     Active Substance: ENALAPRIL
  6. WARFARIN [Concomitant]
     Active Substance: WARFARIN
  7. SODIUM [Concomitant]
     Active Substance: SODIUM
  8. CRESTOR [Concomitant]
     Active Substance: ROSUVASTATIN CALCIUM
  9. SPIRIVA [Concomitant]
     Active Substance: TIOTROPIUM BROMIDE MONOHYDRATE
  10. OPSUMIT [Concomitant]
     Active Substance: MACITENTAN
  11. REVATIO [Concomitant]
     Active Substance: SILDENAFIL CITRATE
  12. VENTOLIN [Concomitant]
     Active Substance: ALBUTEROL SULFATE
  13. PLAVIX [Concomitant]
     Active Substance: CLOPIDOGREL BISULFATE
  14. VITAMIN D [Concomitant]
     Active Substance: CHOLECALCIFEROL
  15. HYDROMORPHONE [Concomitant]
     Active Substance: HYDROMORPHONE

REACTIONS (4)
  - Prostate infection [Unknown]
  - Prostate tenderness [Unknown]
  - Chills [Unknown]
  - Hyperhidrosis [Unknown]

NARRATIVE: CASE EVENT DATE: 201503
